FAERS Safety Report 9519973 (Version 2)
Quarter: 2013Q3

REPORT INFORMATION
  Report Type: Spontaneous
  Country: CH (occurrence: CH)
  Receive Date: 20130912
  Receipt Date: 20130927
  Transmission Date: 20140515
  Serious: Yes (Death)
  Sender: FDA-Public Use
  Company Number: CH-BRISTOL-MYERS SQUIBB COMPANY-19361559

PATIENT
  Age: 68 Year
  Sex: Male

DRUGS (4)
  1. ERBITUX [Suspect]
     Indication: COLORECTAL CANCER METASTATIC
     Route: 042
     Dates: start: 201012, end: 201112
  2. IRINOTECAN [Suspect]
     Indication: COLORECTAL CANCER METASTATIC
     Dates: start: 201012, end: 201112
  3. 5-FLUOROURACIL [Suspect]
     Indication: COLORECTAL CANCER METASTATIC
     Dates: start: 201012, end: 201112
  4. FOLINIC ACID [Suspect]
     Indication: COLORECTAL CANCER METASTATIC
     Dates: start: 201012, end: 201112

REACTIONS (1)
  - Pulmonary embolism [Fatal]
